FAERS Safety Report 23991702 (Version 4)
Quarter: 2024Q3

REPORT INFORMATION
  Report Type: Report from Study
  Country: US (occurrence: US)
  Receive Date: 20240619
  Receipt Date: 20240731
  Transmission Date: 20241016
  Serious: Yes (Hospitalization)
  Sender: BOEHRINGER INGELHEIM
  Company Number: US-BoehringerIngelheim-2023-BI-253311

PATIENT
  Age: 66 Year
  Sex: Male

DRUGS (5)
  1. OFEV [Suspect]
     Active Substance: NINTEDANIB
     Indication: Idiopathic pulmonary fibrosis
     Route: 048
     Dates: start: 202306
  2. OFEV [Suspect]
     Active Substance: NINTEDANIB
     Indication: Interstitial lung disease
     Route: 048
     Dates: start: 202406
  3. TYVASO [Suspect]
     Active Substance: TREPROSTINIL
     Indication: Pulmonary arterial hypertension
     Dosage: 3 BREATHS
     Route: 055
     Dates: start: 202307
  4. TYVASO [Suspect]
     Active Substance: TREPROSTINIL
     Dosage: 9 BREATHS
     Route: 055
     Dates: start: 202307
  5. TYVASO [Suspect]
     Active Substance: TREPROSTINIL
     Dosage: 12 BREATHS
     Route: 055
     Dates: start: 202307

REACTIONS (6)
  - Abscess [Unknown]
  - Diarrhoea [Not Recovered/Not Resolved]
  - Dyspnoea exertional [Unknown]
  - Cough [Recovering/Resolving]
  - Dizziness [Unknown]
  - Oropharyngeal pain [Unknown]

NARRATIVE: CASE EVENT DATE: 20240601
